FAERS Safety Report 25456545 (Version 2)
Quarter: 2025Q3

REPORT INFORMATION
  Report Type: Report from Study
  Country: US (occurrence: US)
  Receive Date: 20250619
  Receipt Date: 20250701
  Transmission Date: 20251020
  Serious: No
  Sender: TAIHO ONCOLOGY INC
  Company Number: US-TAIHOP-2025-006430

PATIENT
  Age: 38 Year
  Sex: Female

DRUGS (2)
  1. INQOVI [Suspect]
     Active Substance: CEDAZURIDINE\DECITABINE
     Indication: Acute myeloid leukaemia
     Dosage: 135MG (100MG OF CEDAZURIDINE AND 35MG OF DECITABINE)?ON DAYS 1-5 OF A 28-DAY ?CYCLE UNKNOWN
     Route: 048
     Dates: start: 20240802
  2. NORTREL [Concomitant]
     Active Substance: ETHINYL ESTRADIOL\NORETHINDRONE
     Indication: Product used for unknown indication

REACTIONS (4)
  - Arthralgia [Unknown]
  - Pain in extremity [Unknown]
  - Underdose [Unknown]
  - Inappropriate schedule of product administration [Unknown]
